FAERS Safety Report 5317863-8 (Version None)
Quarter: 2007Q2

REPORT INFORMATION
  Report Type: 
  Country: None (occurrence: None)
  Receive Date: 20070430
  Receipt Date: 20070419
  Transmission Date: 20071010
  Serious: Yes (Hospitalization)
  Sender: FDA-Public Use
  Company Number: 2007SP007549

PATIENT
  Age: 39 Year
  Sex: Male

DRUGS (3)
  1. DESLORATADINE [Suspect]
     Indication: SEASONAL ALLERGY
     Dosage: 5 MG; ONCE
     Dates: start: 20070414
  2. NASOCORT (CON.) [Concomitant]
  3. BECOTIDE (CON.) [Concomitant]

REACTIONS (7)
  - AMNESIA [None]
  - CREPITATIONS [None]
  - DERMABRASION [None]
  - LUNG INFECTION [None]
  - MALAISE [None]
  - SHOCK [None]
  - TOOTH FRACTURE [None]
